FAERS Safety Report 24587603 (Version 2)
Quarter: 2025Q1

REPORT INFORMATION
  Report Type: Report from Study
  Country: US (occurrence: US)
  Receive Date: 20241107
  Receipt Date: 20250107
  Transmission Date: 20250409
  Serious: Yes (Other)
  Sender: ALEXION PHARMACEUTICALS
  Company Number: US-AstraZeneca-CH-00738043A

PATIENT

DRUGS (4)
  1. EXENATIDE [Suspect]
     Active Substance: EXENATIDE
     Route: 065
  2. EXENATIDE [Suspect]
     Active Substance: EXENATIDE
     Route: 065
  3. EXENATIDE [Suspect]
     Active Substance: EXENATIDE
     Route: 065
  4. EXENATIDE [Suspect]
     Active Substance: EXENATIDE
     Route: 065

REACTIONS (4)
  - Dementia [Unknown]
  - Feeding disorder [Unknown]
  - Weight decreased [Unknown]
  - Diabetes mellitus [Unknown]
